FAERS Safety Report 4308619-3 (Version None)
Quarter: 2004Q1

REPORT INFORMATION
  Report Type: 
  Country: None (occurrence: None)
  Receive Date: 20040227
  Receipt Date: 20040218
  Transmission Date: 20041129
  Serious: Yes (Hospitalization)
  Sender: FDA-Public Use
  Company Number: OSCN-PR-0402L-0025

PATIENT
  Age: 6 Week
  Sex: Female
  Weight: 3.5 kg

DRUGS (3)
  1. OMNISCAN [Suspect]
     Indication: ARTERIOVENOUS FISTULA, ACQUIRED
     Dosage: 6 ML, SINGLE DOSE, I.A.; SINGLE DOSE
     Route: 013
  2. OMNIPAQUE 70 [Suspect]
     Indication: ARTERIOVENOUS FISTULA, ACQUIRED
     Dosage: SINGLE DOSE, I.A.; SINGLE DOSE
     Route: 013
  3. UNSPECIFIED ANTI-EPILEPTIC DRUG [Concomitant]

REACTIONS (2)
  - CEREBRAL HAEMORRHAGE [None]
  - CONVULSION [None]
